FAERS Safety Report 8471770-0 (Version None)
Quarter: 2012Q2

REPORT INFORMATION
  Report Type: 
  Country: None (occurrence: None)
  Receive Date: 20120627
  Receipt Date: 20110525
  Transmission Date: 20120825
  Serious: Yes (Other)
  Sender: FDA-Public Use
  Company Number: BR-ROCHE-780156

PATIENT
  Sex: Male
  Weight: 70 kg

DRUGS (3)
  1. ACETAMINOPHEN [Concomitant]
     Indication: PAIN
  2. CLONAZEPAM [Suspect]
     Indication: PANIC DISORDER
     Dosage: DOSE AND FREQUENCY: 1 TABLET AT NIGHT (CONSUMER ALSO USES 2 TABLETS WHEN HE IS MORE TENSE).
     Route: 065
  3. DIPYRONE TAB [Concomitant]
     Indication: PYREXIA

REACTIONS (2)
  - HYPERTENSIVE CRISIS [None]
  - DRUG INEFFECTIVE [None]
